FAERS Safety Report 21651702 (Version 1)
Quarter: 2022Q4

REPORT INFORMATION
  Report Type: Report from Study
  Country: US (occurrence: US)
  Receive Date: 20221128
  Receipt Date: 20221128
  Transmission Date: 20230113
  Serious: No
  Sender: FDA-Public Use
  Company Number: US-ABBVIE-4162638

PATIENT
  Sex: Female

DRUGS (1)
  1. HUMIRA [Suspect]
     Active Substance: ADALIMUMAB
     Indication: Juvenile idiopathic arthritis
     Dosage: FORM STRENGTH: 20 MG
     Route: 058
     Dates: start: 20220630

REACTIONS (2)
  - Juvenile idiopathic arthritis [Unknown]
  - Weight abnormal [Unknown]

NARRATIVE: CASE EVENT DATE: 20220101
